FAERS Safety Report 7118582-8 (Version None)
Quarter: 2010Q4

REPORT INFORMATION
  Report Type: 
  Country: None (occurrence: None)
  Receive Date: 20101123
  Receipt Date: 20101111
  Transmission Date: 20110411
  Serious: Yes (Hospitalization)
  Sender: FDA-Public Use
  Company Number: ES-SANOFI-AVENTIS-2010SA068753

PATIENT
  Age: 63 Year
  Sex: Female

DRUGS (6)
  1. SEGURIL [Suspect]
     Indication: HYPERTENSION
     Route: 048
     Dates: end: 20100703
  2. ENALAPRIL MALEATE [Interacting]
     Indication: HYPERTENSION
     Route: 048
     Dates: end: 20100702
  3. SITAGLIPTIN AND METFORMIN HYDROCHLORIDE [Interacting]
     Indication: HYPERGLYCAEMIA
     Route: 048
     Dates: start: 20100101, end: 20100702
  4. RIVOTRIL [Concomitant]
     Indication: ANXIETY
     Route: 048
     Dates: start: 19950101
  5. VANDRAL [Concomitant]
     Indication: ANXIETY
     Route: 048
     Dates: start: 19950101
  6. PULMICORT [Concomitant]
     Indication: ASTHMA
     Route: 055

REACTIONS (10)
  - BLOOD CREATININE INCREASED [None]
  - BLOOD GLUCOSE INCREASED [None]
  - BLOOD POTASSIUM INCREASED [None]
  - BLOOD SODIUM DECREASED [None]
  - DRUG INTERACTION [None]
  - DYSPNOEA [None]
  - LACTIC ACIDOSIS [None]
  - PO2 DECREASED [None]
  - VOMITING [None]
  - WHITE BLOOD CELL COUNT INCREASED [None]
